FAERS Safety Report 7796238-6 (Version None)
Quarter: 2011Q4

REPORT INFORMATION
  Report Type: 
  Country: None (occurrence: None)
  Receive Date: 20111004
  Receipt Date: 20110928
  Transmission Date: 20120403
  Serious: Yes (Other)
  Sender: FDA-Public Use
  Company Number: CH-MERCK-1109USA03288

PATIENT
  Age: 66 Year
  Sex: Female

DRUGS (3)
  1. ASPIRIN [Concomitant]
     Route: 048
     Dates: start: 20060101
  2. ZOCOR [Suspect]
     Indication: HYPERLIPIDAEMIA
     Route: 048
     Dates: start: 20060101
  3. TENORETIC 100 [Concomitant]
     Route: 065
     Dates: start: 20060101

REACTIONS (1)
  - TENDONITIS [None]
